FAERS Safety Report 8455741-6 (Version None)
Quarter: 2012Q2

REPORT INFORMATION
  Report Type: 
  Country: None (occurrence: None)
  Receive Date: 20120621
  Receipt Date: 20120614
  Transmission Date: 20120825
  Serious: Yes (Other)
  Sender: FDA-Public Use
  Company Number: US-PFIZER INC-2012094272

PATIENT
  Sex: Female
  Weight: 81.633 kg

DRUGS (2)
  1. PRISTIQ [Suspect]
     Indication: DEPRESSION
     Dosage: 50 MG, 1X/DAY
     Route: 048
     Dates: start: 20110701, end: 20120323
  2. MINOCYCLINE [Concomitant]
     Indication: ROSACEA
     Dosage: UNK

REACTIONS (5)
  - HYPERHIDROSIS [None]
  - DEAFNESS [None]
  - PALPITATIONS [None]
  - DRUG WITHDRAWAL SYNDROME [None]
  - EMOTIONAL DISORDER [None]
